FAERS Safety Report 21249875 (Version 1)
Quarter: 2022Q3

REPORT INFORMATION
  Report Type: Spontaneous
  Country: CO (occurrence: CO)
  Receive Date: 20220824
  Receipt Date: 20220824
  Transmission Date: 20221026
  Serious: Yes (Other)
  Sender: FDA-Public Use
  Company Number: CO-TAKEDA-2022TUS057414

PATIENT
  Age: 34 Year
  Sex: Male
  Weight: 52 kg

DRUGS (4)
  1. PONATINIB [Suspect]
     Active Substance: PONATINIB
     Indication: Chronic myeloid leukaemia
     Dosage: 45 MILLIGRAM, QD
     Route: 048
     Dates: start: 20171026
  2. HYDROXYUREA [Concomitant]
     Active Substance: HYDROXYUREA
     Dosage: 500 MILLIGRAM, Q12H
     Route: 065
     Dates: start: 202201
  3. VITAMINS [Concomitant]
     Active Substance: VITAMINS
     Dosage: 220 MILLILITER, Q12H
     Route: 065
     Dates: start: 202101
  4. ACETAMINOPHEN [Concomitant]
     Active Substance: ACETAMINOPHEN
     Dosage: 500 MILLIGRAM, Q12H
     Route: 065
     Dates: start: 202101

REACTIONS (2)
  - Pigmentation disorder [Unknown]
  - Dry skin [Recovering/Resolving]

NARRATIVE: CASE EVENT DATE: 20220201
